FAERS Safety Report 18997765 (Version 1)
Quarter: 2021Q1

REPORT INFORMATION
  Report Type: Report from Study
  Country: JP (occurrence: JP)
  Receive Date: 20210311
  Receipt Date: 20210311
  Transmission Date: 20210420
  Serious: Yes (Death, Hospitalization, Other)
  Sender: FDA-Public Use
  Company Number: JP-AUROBINDO-AUR-APL-2019-048065

PATIENT
  Age: 55 Year
  Sex: Male
  Weight: 65.2 kg

DRUGS (7)
  1. ZEVALIN [Suspect]
     Active Substance: IBRITUMOMAB TIUXETAN
     Dosage: 965 MEGABECQUEREL, SINGLE
     Route: 042
     Dates: start: 20090826, end: 20090826
  2. ZEVALIN [Suspect]
     Active Substance: IBRITUMOMAB TIUXETAN
     Dosage: 14.8 MEGABECQUEREL/KG, SINGLE
     Route: 042
     Dates: start: 20090826, end: 20090826
  3. RITUXIMAB. [Suspect]
     Active Substance: RITUXIMAB
     Dosage: 250 MILLIGRAM/SQ. METER, ONCE A DAY, SINGLE
     Route: 041
     Dates: start: 20090826, end: 20090826
  4. ZEVALIN [Suspect]
     Active Substance: IBRITUMOMAB TIUXETAN
     Indication: EXTRANODAL MARGINAL ZONE B-CELL LYMPHOMA (MALT TYPE) STAGE III
     Dosage: 130 MEGABECQUEREL, ONCE A DAY
     Route: 042
     Dates: start: 20090819, end: 20090819
  5. RITUXIMAB. [Suspect]
     Active Substance: RITUXIMAB
     Indication: EXTRANODAL MARGINAL ZONE B-CELL LYMPHOMA (MALT TYPE) STAGE III
     Dosage: 250 MILLIGRAM/SQ. METER, ONCE A DAY, SINGLE
     Route: 041
     Dates: start: 20090819, end: 20090819
  6. FIRSTCIN [Concomitant]
     Active Substance: CEFOZOPRAN HYDROCHLORIDE
     Indication: CYSTITIS HAEMORRHAGIC
     Dosage: 2 GRAM, DAILY
     Route: 041
     Dates: start: 20090924, end: 20090929
  7. FLUDARABINE [Suspect]
     Active Substance: FLUDARABINE PHOSPHATE
     Indication: PRODUCT USED FOR UNKNOWN INDICATION
     Dosage: UNK
     Route: 042
     Dates: start: 20090326, end: 20090605

REACTIONS (2)
  - Extranodal marginal zone B-cell lymphoma (MALT type) [Fatal]
  - Cystitis haemorrhagic [Recovered/Resolved]

NARRATIVE: CASE EVENT DATE: 20090922
